FAERS Safety Report 23214023 (Version 2)
Quarter: 2024Q1

REPORT INFORMATION
  Report Type: Report from Study
  Country: RU (occurrence: RU)
  Receive Date: 20231121
  Receipt Date: 20240321
  Transmission Date: 20240409
  Serious: Yes (Other)
  Sender: FDA-Public Use
  Company Number: RU-002147023-NVSC2023RU247229

PATIENT
  Age: 61 Year
  Sex: Male

DRUGS (9)
  1. DABRAFENIB [Suspect]
     Active Substance: DABRAFENIB
     Indication: Lung neoplasm malignant
     Dosage: UNK (IN A REDUCED DOSE (2 STEPS)
     Route: 065
     Dates: start: 20230510, end: 20230602
  2. DABRAFENIB [Suspect]
     Active Substance: DABRAFENIB
     Dosage: UNK (RESTARTED IN A REDUCED DOSE IN 1 STEP)
     Route: 065
     Dates: start: 20230609
  3. DABRAFENIB [Suspect]
     Active Substance: DABRAFENIB
     Dosage: UNK (TARGETED THERAPY WAS REDUCED TO 2 STEPS)
     Route: 065
  4. DABRAFENIB [Suspect]
     Active Substance: DABRAFENIB
     Dosage: 150 MG, BID
     Route: 048
  5. TRAMETINIB [Suspect]
     Active Substance: TRAMETINIB
     Indication: Lung neoplasm malignant
     Dosage: UNK (IN A REDUCED DOSE (2 STEPS)
     Route: 065
     Dates: start: 20230510, end: 20230602
  6. TRAMETINIB [Suspect]
     Active Substance: TRAMETINIB
     Dosage: UNK (RESTARTED IN A REDUCED DOSE IN 1 STEP)
     Route: 065
     Dates: start: 20230609
  7. TRAMETINIB [Suspect]
     Active Substance: TRAMETINIB
     Dosage: UNK (TARGETED THERAPY WAS REDUCED TO 2 STEPS)
     Route: 065
  8. TRAMETINIB [Suspect]
     Active Substance: TRAMETINIB
     Dosage: 2 MG, QD
     Route: 048
  9. ACETAMINOPHEN [Concomitant]
     Active Substance: ACETAMINOPHEN
     Indication: Product used for unknown indication
     Dosage: UNK
     Route: 065

REACTIONS (3)
  - Loss of consciousness [Recovered/Resolved]
  - Pyrexia [Recovered/Resolved]
  - Pyrexia [Recovered/Resolved]

NARRATIVE: CASE EVENT DATE: 20230602
